FAERS Safety Report 15065136 (Version 2)
Quarter: 2018Q3

REPORT INFORMATION
  Report Type: Spontaneous
  Country: JP (occurrence: JP)
  Receive Date: 20180626
  Receipt Date: 20180808
  Transmission Date: 20181010
  Serious: Yes (Hospitalization, Congenital Anomaly)
  Sender: FDA-Public Use
  Company Number: JP-ASTELLAS-2018JP011814

PATIENT
  Sex: Male
  Weight: 1.8 kg

DRUGS (4)
  1. BREDININ [Suspect]
     Active Substance: MIZORIBINE
     Indication: FOETAL EXPOSURE DURING PREGNANCY
     Route: 064
     Dates: end: 20090528
  2. MEDROL [Suspect]
     Active Substance: METHYLPREDNISOLONE
     Indication: FOETAL EXPOSURE DURING PREGNANCY
     Route: 064
     Dates: end: 20090528
  3. PROGRAF [Suspect]
     Active Substance: TACROLIMUS\TACROLIMUS ANHYDROUS
     Indication: FOETAL EXPOSURE DURING PREGNANCY
     Route: 064
     Dates: end: 20090528
  4. SELBEX [Concomitant]
     Active Substance: TEPRENONE
     Indication: FOETAL EXPOSURE DURING PREGNANCY
     Dosage: 0.5 G, TWICE DAILY
     Route: 064
     Dates: end: 20090528

REACTIONS (1)
  - Low birth weight baby [Recovered/Resolved]
